FAERS Safety Report 19869319 (Version 1)
Quarter: 2021Q3

REPORT INFORMATION
  Report Type: Spontaneous
  Country: GB (occurrence: GB)
  Receive Date: 20210922
  Receipt Date: 20210922
  Transmission Date: 20211014
  Serious: Yes (Disabling, Other)
  Sender: FDA-Public Use
  Company Number: GB-TEVA-2021-GB-1954451

PATIENT
  Age: 34 Year
  Sex: Female
  Weight: 63 kg

DRUGS (12)
  1. NITROFURANTOIN. [Concomitant]
     Active Substance: NITROFURANTOIN
     Dosage: 1 DOSAGE FORMS
     Route: 048
     Dates: start: 20210809, end: 20210813
  2. METHADONE [Concomitant]
     Active Substance: METHADONE HYDROCHLORIDE
     Dosage: VARIABLE DOSE
     Dates: start: 20210828, end: 20210905
  3. AMITRIPTYLINE HYDROCHLORIDE. [Concomitant]
     Active Substance: AMITRIPTYLINE HYDROCHLORIDE
     Dosage: 1 DOSAGE FORMS
     Route: 048
     Dates: start: 20210805
  4. PROMETHAZINE HYDROCHLORIDE. [Suspect]
     Active Substance: PROMETHAZINE HYDROCHLORIDE
     Dosage: 1?2 TABLET
     Route: 048
     Dates: start: 20210906
  5. DIAZEPAM. [Concomitant]
     Active Substance: DIAZEPAM
     Dosage: VARIABLE DOSE
     Dates: start: 20210727, end: 20210822
  6. LOPERAMIDE [Concomitant]
     Active Substance: LOPERAMIDE
     Dosage: 1 DOSAGE FORMS
     Route: 048
     Dates: start: 20210906
  7. MEBEVERINE HYDROCHLORIDE [Concomitant]
     Active Substance: MEBEVERINE HYDROCHLORIDE
     Dosage: 1 DOSAGE FORMS
     Route: 048
     Dates: start: 20210906
  8. CELECOXIB. [Concomitant]
     Active Substance: CELECOXIB
     Dosage: 1 DOSAGE FORMS
     Route: 048
     Dates: start: 20210805
  9. IBUPROFEN. [Concomitant]
     Active Substance: IBUPROFEN
     Dosage: 1DOSAGE FORMS
     Route: 048
     Dates: start: 20210906
  10. METOCLOPRAMIDE. [Concomitant]
     Active Substance: METOCLOPRAMIDE
     Dosage: 1 DOSAGE FORMS
     Route: 048
     Dates: start: 20210727, end: 20210803
  11. MIRTAZAPINE. [Concomitant]
     Active Substance: MIRTAZAPINE
     Dosage: 1 DOSAGE FORMS DAILY; AN HOUR BEFORE BEDTIME
     Dates: start: 20210706
  12. ANUSOL NOS [Concomitant]
     Active Substance: BALSAM PERU\BENZYL BENZOATE\BISMUTH HYDROXIDE\BISMUTH SUBGALLATE\HYDROCORTISONE ACETATE\ZINC OXIDE
     Dosage: 1 DOSAGE FORMS, APPLICATION
     Dates: start: 20210819, end: 20210902

REACTIONS (4)
  - Urticaria [Recovering/Resolving]
  - Rhinorrhoea [Recovering/Resolving]
  - Lacrimation increased [Recovering/Resolving]
  - Sneezing [Recovering/Resolving]
